FAERS Safety Report 8910433 (Version 1)
Quarter: 2012Q4

REPORT INFORMATION
  Report Type: Report from Study
  Country: DK (occurrence: DK)
  Receive Date: 20121114
  Receipt Date: 20121114
  Transmission Date: 20130627
  Serious: Yes (Death, Hospitalization)
  Sender: FDA-Public Use
  Company Number: DK-PFIZER INC-2012282799

PATIENT
  Age: 74 Year
  Sex: Male
  Weight: 95 kg

DRUGS (6)
  1. DOXORUBICIN HCL [Suspect]
     Indication: B-CELL LYMPHOMA
     Dosage: 105 mg pr day of a 14 day cycle
     Route: 042
     Dates: start: 20120426, end: 20120426
  2. PREDNISONE [Suspect]
     Indication: B-CELL LYMPHOMA
     Dosage: 1,2,3,4,5 of a 14 days cycle
     Route: 048
     Dates: start: 20120426, end: 20120430
  3. VINCRISTINE [Suspect]
     Indication: B-CELL LYMPHOMA
     Dosage: 2 mg, day 1 of a 14 day cycle
     Route: 042
     Dates: start: 20120426, end: 20120426
  4. RITUXIMAB [Suspect]
     Dosage: UNK
     Dates: start: 20120426, end: 20120426
  5. CYCLOPHOSPHAMIDE [Suspect]
     Dosage: 1575 mg, day 1 of a 14 day cycle
     Route: 042
     Dates: start: 20120426, end: 20120426
  6. G-CSF [Concomitant]
     Indication: B-CELL LYMPHOMA
     Dosage: 6 mg, day 2 of a 14 day cycle
     Route: 059
     Dates: start: 20120427, end: 20120427

REACTIONS (2)
  - Febrile neutropenia [Fatal]
  - Infection [Fatal]
